FAERS Safety Report 11507188 (Version 1)
Quarter: 2015Q3

REPORT INFORMATION
  Report Type: Spontaneous
  Country: US (occurrence: US)
  Receive Date: 20150915
  Receipt Date: 20150915
  Transmission Date: 20151125
  Serious: No
  Sender: FDA-Public Use
  Company Number: US-BANPHARM-20153395

PATIENT
  Age: 76 Year
  Sex: Male
  Weight: 95.25 kg

DRUGS (5)
  1. ZYRTEC [Suspect]
     Active Substance: CETIRIZINE HYDROCHLORIDE
     Indication: SEASONAL ALLERGY
     Dosage: 1 DF, QD,
     Route: 048
  2. VITAMINS [Concomitant]
     Active Substance: VITAMINS
     Dosage: 1 DF, QD,
  3. METOPROLOL 25 MG [Concomitant]
     Active Substance: METOPROLOL
     Dosage: 2 DF, QD,
  4. FISH OIL [Concomitant]
     Active Substance: FISH OIL
     Dosage: 1 DF, QD,
  5. LISINOPRIL 40 MG [Concomitant]
     Dosage: QD,

REACTIONS (1)
  - Drug effect incomplete [Unknown]
